FAERS Safety Report 6330691-X (Version None)
Quarter: 2009Q3

REPORT INFORMATION
  Report Type: 
  Country: None (occurrence: None)
  Receive Date: 20090827
  Receipt Date: 20090821
  Transmission Date: 20100115
  Serious: Yes (Hospitalization)
  Sender: FDA-Public Use
  Company Number: US-BAYER-200928521NA

PATIENT
  Age: 70 Year
  Sex: Female
  Weight: 59 kg

DRUGS (11)
  1. AVELOX [Suspect]
     Indication: BRONCHITIS
     Dosage: TOTAL DAILY DOSE: 400 MG  UNIT DOSE: 400 MG
     Dates: start: 20090408, end: 20090408
  2. ALBUTEROL [Concomitant]
  3. CALCITE [Concomitant]
  4. ATROVENT [Concomitant]
  5. ASPIRIN [Concomitant]
  6. SPIRIVA [Concomitant]
  7. SYMBICORT [Concomitant]
  8. ZOCOR [Concomitant]
  9. MULTI-VITAMIN [Concomitant]
  10. ELANTAN [Concomitant]
  11. ACYCLOVIR [Concomitant]
     Dates: start: 20090407, end: 20090408

REACTIONS (3)
  - BLOOD PRESSURE INCREASED [None]
  - DYSPNOEA [None]
  - VOMITING PROJECTILE [None]
